FAERS Safety Report 26164944 (Version 1)
Quarter: 2025Q4

REPORT INFORMATION
  Report Type: Spontaneous
  Country: TH (occurrence: TH)
  Receive Date: 20251216
  Receipt Date: 20251216
  Transmission Date: 20260117
  Serious: Yes (Other)
  Sender: AMGEN
  Company Number: TH-AMGEN-THASP2025244449

PATIENT

DRUGS (1)
  1. BEVACIZUMAB [Suspect]
     Active Substance: BEVACIZUMAB
     Indication: Retinopathy of prematurity
     Dosage: UNK

REACTIONS (7)
  - Retinopathy of prematurity [Unknown]
  - Retinal vascular disorder [Unknown]
  - Retinal detachment [Unknown]
  - Drug effective for unapproved indication [Unknown]
  - Treatment failure [Unknown]
  - Off label use [Unknown]
  - Strabismus [Unknown]
